FAERS Safety Report 9357959 (Version 2)
Quarter: 2013Q3

REPORT INFORMATION
  Report Type: Spontaneous
  Country: US (occurrence: US)
  Receive Date: 20130620
  Receipt Date: 20130926
  Transmission Date: 20140515
  Serious: Yes (Life-Threatening, Hospitalization)
  Sender: FDA-Public Use
  Company Number: US-BAYER-2013-074644

PATIENT
  Age: 23 Year
  Sex: Female

DRUGS (1)
  1. BEYAZ [Suspect]

REACTIONS (14)
  - Cerebrovascular accident [None]
  - Intracranial venous sinus thrombosis [None]
  - Coma [None]
  - Deep vein thrombosis [None]
  - Fatigue [None]
  - Asthenia [None]
  - Pain [None]
  - Anxiety [None]
  - Amnesia [None]
  - Cognitive disorder [None]
  - Anhedonia [None]
  - General physical health deterioration [None]
  - Injury [None]
  - Emotional distress [None]
